FAERS Safety Report 5451377-X (Version None)
Quarter: 2007Q3

REPORT INFORMATION
  Report Type: 
  Country: None (occurrence: None)
  Receive Date: 20070913
  Receipt Date: 20070907
  Transmission Date: 20080115
  Serious: Yes (Hospitalization)
  Sender: FDA-Public Use
  Company Number: NO-MERCK-0709NOR00003

PATIENT
  Age: 76 Year
  Sex: Male

DRUGS (8)
  1. ZOCOR [Suspect]
     Indication: HYPERCHOLESTEROLAEMIA
     Route: 048
     Dates: start: 20070507
  2. ZOCOR [Suspect]
     Route: 048
     Dates: end: 20070506
  3. ATENOLOL [Concomitant]
     Route: 048
  4. DILTIAZEM HYDROCHLORIDE [Suspect]
     Route: 048
     Dates: end: 20070601
  5. ASPIRIN AND MAGNESIUM OXIDE [Concomitant]
     Route: 048
  6. ISOSORBIDE MONONITRATE [Concomitant]
     Route: 048
  7. FUROSEMIDE [Concomitant]
     Route: 048
     Dates: end: 20070601
  8. FUROSEMIDE [Concomitant]
     Route: 048
     Dates: start: 20070601

REACTIONS (2)
  - DRUG INTERACTION [None]
  - RHABDOMYOLYSIS [None]
